FAERS Safety Report 19360112 (Version 9)
Quarter: 2024Q1

REPORT INFORMATION
  Report Type: Other
  Country: CN (occurrence: None)
  Receive Date: 20210601
  Receipt Date: 20240202
  Transmission Date: 20240410
  Serious: Yes (Hospitalization, Other)
  Sender: FDA-Public Use
  Company Number: CN-ROCHE-2514414

PATIENT
  Age: 75 Year
  Sex: Male
  Weight: 60 kg

DRUGS (2)
  1. AVASTIN [Suspect]
     Active Substance: BEVACIZUMAB
     Indication: Rectal cancer
     Dosage: FORM OF ADMIN: 100MG, INJECTION
     Route: 041
     Dates: start: 20170624, end: 20210325
  2. AVASTIN [Suspect]
     Active Substance: BEVACIZUMAB
     Dosage: FORM OF ADMIN:100MG, INJECTION
     Route: 041

REACTIONS (8)
  - Arteriosclerosis coronary artery [Recovered/Resolved]
  - Hepatic neoplasm [Not Recovered/Not Resolved]
  - Hepatic cancer metastatic [Unknown]
  - Nasopharyngitis [Unknown]
  - Cardiac discomfort [Unknown]
  - Liver disorder [Not Recovered/Not Resolved]
  - Asthenia [Unknown]
  - Hepatomegaly [Not Recovered/Not Resolved]

NARRATIVE: CASE EVENT DATE: 20191227
